FAERS Safety Report 23182775 (Version 1)
Quarter: 2023Q4

REPORT INFORMATION
  Report Type: Report from Study
  Country: DE (occurrence: DE)
  Receive Date: 20231114
  Receipt Date: 20231114
  Transmission Date: 20240110
  Serious: Yes (Hospitalization)
  Sender: FDA-Public Use
  Company Number: DE-MYLANLABS-2023M1105891

PATIENT
  Sex: Female

DRUGS (5)
  1. METHOTREXATE [Suspect]
     Active Substance: METHOTREXATE
     Indication: Rheumatoid arthritis
     Dosage: 15 MILLIGRAM
     Dates: start: 20230418
  2. METHOTREXATE [Suspect]
     Active Substance: METHOTREXATE
     Indication: Rheumatoid arthritis
     Dosage: 15 MILLIGRAM
     Dates: start: 20221014
  3. OLUMIANT [Concomitant]
     Active Substance: BARICITINIB
     Indication: Rheumatoid arthritis
     Dosage: 2 MILLIGRAM
     Dates: end: 202202
  4. OLUMIANT [Concomitant]
     Active Substance: BARICITINIB
     Indication: Rheumatoid arthritis
     Dosage: 4 MILLIGRAM
     Dates: start: 201804
  5. FILGOTINIB [Concomitant]
     Active Substance: FILGOTINIB
     Indication: Rheumatoid arthritis
     Dosage: 100 MILLIGRAM
     Dates: start: 202202, end: 202207

REACTIONS (1)
  - Medical device change [Recovered/Resolved]

NARRATIVE: CASE EVENT DATE: 20230320
